FAERS Safety Report 25519111 (Version 1)
Quarter: 2025Q3

REPORT INFORMATION
  Report Type: Report from Study
  Country: US (occurrence: US)
  Receive Date: 20250704
  Receipt Date: 20250704
  Transmission Date: 20251020
  Serious: Yes (Disabling, Other)
  Sender: ABBVIE
  Company Number: US-ABBVIE-6353478

PATIENT
  Sex: Female

DRUGS (3)
  1. HUMIRA [Suspect]
     Active Substance: ADALIMUMAB
     Indication: Product used for unknown indication
     Route: 058
  2. PREDNISONE [Suspect]
     Active Substance: PREDNISONE
     Indication: Product used for unknown indication
     Route: 065
  3. ENBREL [Suspect]
     Active Substance: ETANERCEPT
     Indication: Product used for unknown indication
     Route: 065

REACTIONS (16)
  - Disability [Unknown]
  - Swelling [Unknown]
  - Adverse drug reaction [Recovered/Resolved]
  - Unevaluable event [Unknown]
  - Immobile [Unknown]
  - Aneurysm [Unknown]
  - Confusional state [Unknown]
  - Rash papular [Unknown]
  - Asthenopia [Unknown]
  - Amnesia [Unknown]
  - Hand deformity [Unknown]
  - Medical device implantation [Unknown]
  - Movement disorder [Unknown]
  - Weight increased [Unknown]
  - Fatigue [Unknown]
  - Attention deficit hyperactivity disorder [Unknown]
